FAERS Safety Report 11915049 (Version 3)
Quarter: 2016Q3

REPORT INFORMATION
  Report Type: Spontaneous
  Country: US (occurrence: US)
  Receive Date: 20160113
  Receipt Date: 20160926
  Transmission Date: 20161109
  Serious: No
  Sender: FDA-Public Use
  Company Number: US-GLENMARK PHARMACEUTICALS INC, USA.-2015GMK019002

PATIENT
  Age: 43 Year
  Sex: Male

DRUGS (7)
  1. MONTELUKAST [Suspect]
     Active Substance: MONTELUKAST SODIUM
     Indication: ANAPHYLACTIC REACTION
     Dosage: UNK
  2. RANITIDINE HCL [Suspect]
     Active Substance: RANITIDINE HYDROCHLORIDE
     Indication: ANAPHYLACTIC REACTION
     Dosage: UNK
  3. FLUTICASONE [Suspect]
     Active Substance: FLUTICASONE\FLUTICASONE PROPIONATE
     Indication: ANAPHYLACTIC REACTION
     Dosage: UNK
     Route: 045
  4. ALBUTEROL                          /00139501/ [Suspect]
     Active Substance: ALBUTEROL
     Indication: ANAPHYLACTIC REACTION
     Dosage: UNK
  5. LEVOCETIRIZINE [Suspect]
     Active Substance: LEVOCETIRIZINE
     Indication: ANAPHYLACTIC REACTION
     Dosage: UNK
  6. FEXOFENADINE [Suspect]
     Active Substance: FEXOFENADINE\FEXOFENADINE HYDROCHLORIDE
     Indication: ANAPHYLACTIC REACTION
     Dosage: UNK
  7. ESOMEPRAZOLE [Suspect]
     Active Substance: ESOMEPRAZOLE
     Indication: ANAPHYLACTIC REACTION
     Dosage: UNK

REACTIONS (1)
  - Off label use [Unknown]
